FAERS Safety Report 26176259 (Version 1)
Quarter: 2025Q4

REPORT INFORMATION
  Report Type: Spontaneous
  Country: US (occurrence: US)
  Receive Date: 20251218
  Receipt Date: 20251218
  Transmission Date: 20260117
  Serious: No
  Sender: FRESENIUS KABI
  Company Number: US-FreseniusKabi-FK202517129

PATIENT

DRUGS (2)
  1. DIPRIVAN [Suspect]
     Active Substance: PROPOFOL
     Indication: Sedation
     Dosage: 200MG VIAL?BOTH VIALS OF PROPOFOL 200 MG AND 500 MG, WITH A STRENGTH OF 10MG/ML, STARTED PROCEDURES
     Route: 042
     Dates: start: 202512
  2. DIPRIVAN [Suspect]
     Active Substance: PROPOFOL
     Dosage: 500MG VIAL?BOTH VIALS OF PROPOFOL 200 MG AND 500 MG, WITH A STRENGTH OF 10MG/ML, STARTED PROCEDURES
     Route: 042
     Dates: start: 202512

REACTIONS (1)
  - Drug ineffective [Unknown]

NARRATIVE: CASE EVENT DATE: 20251201
